FAERS Safety Report 5122776-0 (Version None)
Quarter: 2006Q4

REPORT INFORMATION
  Report Type: 
  Country: None (occurrence: None)
  Receive Date: 20061009
  Receipt Date: 20060515
  Transmission Date: 20070319
  Serious: Yes (Other)
  Sender: FDA-Public Use
  Company Number: FI-BAYER-200612022GDS

PATIENT
  Age: 51 Year
  Sex: Male
  Weight: 85 kg

DRUGS (14)
  1. VARDENAFIL ONCE DAILY [Suspect]
     Indication: ERECTILE DYSFUNCTION
     Route: 048
     Dates: start: 20050804, end: 20050906
  2. VARDENAFIL ONCE DAILY [Suspect]
     Route: 048
     Dates: start: 20050804, end: 20050906
  3. VARDENAFIL ONCE DAILY [Suspect]
     Route: 048
     Dates: start: 20050907, end: 20050921
  4. VARDENAFIL ONCE DAILY [Suspect]
     Route: 048
     Dates: start: 20050922, end: 20051022
  5. VARDENAFIL ONCE DAILY [Suspect]
     Route: 048
     Dates: start: 20051103, end: 20060122
  6. VARDENAFIL ONCE DAILY [Suspect]
     Route: 048
     Dates: start: 20050922, end: 20051022
  7. VARDENAFIL ONCE DAILY [Suspect]
     Route: 048
     Dates: start: 20050907, end: 20050921
  8. VARDENAFIL ONCE DAILY [Suspect]
     Route: 048
     Dates: start: 20051103, end: 20060122
  9. VARDENAFIL ONCE DAILY [Suspect]
     Route: 048
     Dates: start: 20060123
  10. VARDENAFIL ONCE DAILY [Suspect]
     Route: 048
     Dates: start: 20060123
  11. SERETIDE DISKUS [Concomitant]
     Indication: ASTHMA
     Route: 065
     Dates: start: 20000101
  12. PANACOD [Concomitant]
     Indication: PROCEDURAL PAIN
     Route: 065
  13. DIOVAN COMP [Concomitant]
     Indication: HYPERTENSION
     Route: 065
     Dates: start: 19970101
  14. VENTOLIN [Concomitant]
     Indication: ASTHMA
     Route: 065
     Dates: start: 19850101

REACTIONS (1)
  - DETACHMENT OF RETINAL PIGMENT EPITHELIUM [None]
